FAERS Safety Report 12064141 (Version 1)
Quarter: 2016Q1

REPORT INFORMATION
  Report Type: Spontaneous
  Country: US (occurrence: US)
  Receive Date: 20160210
  Receipt Date: 20160210
  Transmission Date: 20160526
  Serious: No
  Sender: FDA-Public Use
  Company Number: US-ALLERGAN-1511562US

PATIENT
  Age: 46 Year
  Sex: Male
  Weight: 78.46 kg

DRUGS (3)
  1. AMBIEN [Concomitant]
     Active Substance: ZOLPIDEM TARTRATE
     Indication: SLEEP DISORDER
     Dosage: 10 MG, UNK
     Route: 048
  2. TAMSULOSIN [Concomitant]
     Active Substance: TAMSULOSIN
     Indication: HYPERTONIC BLADDER
     Dosage: 0.4 MG, UNK
  3. BOTOX [Suspect]
     Active Substance: ONABOTULINUMTOXINA
     Indication: HYPERTONIC BLADDER
     Dosage: 100 UNITS, SINGLE
     Route: 030
     Dates: start: 20150611, end: 20150611

REACTIONS (3)
  - Urinary retention [Not Recovered/Not Resolved]
  - Urinary tract infection [Unknown]
  - Bladder outlet obstruction [Unknown]

NARRATIVE: CASE EVENT DATE: 20150612
